FAERS Safety Report 4532227-2 (Version None)
Quarter: 2004Q4

REPORT INFORMATION
  Report Type: 
  Country: None (occurrence: None)
  Receive Date: 20041217
  Receipt Date: 20040728
  Transmission Date: 20050328
  Serious: Yes (Hospitalization)
  Sender: FDA-Public Use
  Company Number: 2004SE04292

PATIENT
  Age: 65 Year
  Sex: Female

DRUGS (1)
  1. AXAGON [Suspect]
     Indication: HIATUS HERNIA
     Dosage: 80 MG DAILY PO
     Route: 048
     Dates: start: 20040702, end: 20040702

REACTIONS (1)
  - HEPATITIS TOXIC [None]
